FAERS Safety Report 8365041-0 (Version None)
Quarter: 2012Q2

REPORT INFORMATION
  Report Type: 
  Country: None (occurrence: None)
  Receive Date: 20120516
  Receipt Date: 20120510
  Transmission Date: 20120825
  Serious: Yes (Death)
  Sender: FDA-Public Use
  Company Number: JP-GLAXOSMITHKLINE-B0801222A

PATIENT
  Sex: Female

DRUGS (10)
  1. LANSOPRAZOLE [Concomitant]
     Dosage: 1IUAX PER DAY
     Route: 048
  2. HICEE [Concomitant]
     Dosage: 3IUAX PER DAY
     Route: 048
  3. DIFLUCAN [Concomitant]
     Route: 048
  4. COTRIM [Concomitant]
     Route: 048
  5. CEPHARANTHINE [Concomitant]
     Dosage: 6IUAX PER DAY
     Route: 048
  6. TRANSAMINE CAP [Concomitant]
     Dosage: 6IUAX PER DAY
     Route: 048
  7. ADONA (AC-17) [Concomitant]
     Dosage: 6IUAX PER DAY
     Route: 048
  8. PROMACTA [Suspect]
     Indication: IDIOPATHIC THROMBOCYTOPENIC PURPURA
     Dosage: 25MG PER DAY
     Route: 048
     Dates: start: 20120328, end: 20120410
  9. VALTREX [Concomitant]
     Indication: PROPHYLAXIS
     Route: 048
  10. PREDNISOLONE [Concomitant]
     Dosage: 3IUAX PER DAY
     Route: 048

REACTIONS (5)
  - DEATH [None]
  - CIRCULATORY COLLAPSE [None]
  - ANAEMIA [None]
  - HAEMODIALYSIS COMPLICATION [None]
  - GENERAL PHYSICAL HEALTH DETERIORATION [None]
